FAERS Safety Report 4370906-0 (Version None)
Quarter: 2004Q2

REPORT INFORMATION
  Report Type: 
  Country: None (occurrence: None)
  Receive Date: 20040601
  Receipt Date: 20040519
  Transmission Date: 20050107
  Serious: Yes (Other)
  Sender: FDA-Public Use
  Company Number: DE-SHR-04-023310

PATIENT
  Age: 38 Year
  Sex: Female
  Weight: 67 kg

DRUGS (1)
  1. MIRENA [Suspect]
     Indication: CONTRACEPTION
     Dosage: 20  UG/DAY, CONT, INTRA-UTERINE
     Route: 015
     Dates: start: 20040222, end: 20040315

REACTIONS (5)
  - DRUG INTOLERANCE [None]
  - EOSINOPHILIC COLITIS [None]
  - FOOD ALLERGY [None]
  - PARASITIC INFECTION INTESTINAL [None]
  - PROCTITIS [None]
